FAERS Safety Report 4906057-3 (Version None)
Quarter: 2006Q1

REPORT INFORMATION
  Report Type: 
  Country: None (occurrence: None)
  Receive Date: 20060207
  Receipt Date: 20060125
  Transmission Date: 20060701
  Serious: Yes (Hospitalization)
  Sender: FDA-Public Use
  Company Number: GXKR2006GB00707

PATIENT
  Age: 27 Year
  Sex: Male

DRUGS (3)
  1. SULFADIAZINE [Suspect]
     Indication: PROPHYLAXIS
     Dosage: 3 G, BID,
  2. FOLINIC ACID (NGX) (FOLINIC ACID) [Suspect]
     Indication: PROPHYLAXIS
     Dosage: 15 MG, QD,
  3. PYRIMETHAMINE TAB [Suspect]
     Indication: PROPHYLAXIS
     Dosage: SEE IMAGE

REACTIONS (8)
  - CHILLS [None]
  - ERYTHEMA [None]
  - MENINGITIS LISTERIA [None]
  - NEUTROPENIA [None]
  - RASH MACULO-PAPULAR [None]
  - SALIVARY GLAND ENLARGEMENT [None]
  - THROMBOCYTOPENIA [None]
  - TONSILLAR DISORDER [None]
